FAERS Safety Report 5522971-2 (Version None)
Quarter: 2007Q4

REPORT INFORMATION
  Report Type: 
  Country: None (occurrence: None)
  Receive Date: 20071121
  Receipt Date: 20071113
  Transmission Date: 20080405
  Serious: Yes (Hospitalization)
  Sender: FDA-Public Use
  Company Number: PHBS2007ES18470

PATIENT
  Age: 12 Year
  Sex: Female

DRUGS (2)
  1. EXJADE [Suspect]
     Indication: THALASSAEMIA BETA
     Dosage: 20 MG/KG/DAY
     Dates: start: 20070701
  2. DESFERIN [Suspect]
     Indication: CHELATION THERAPY
     Dates: end: 20070705

REACTIONS (4)
  - INFECTION [None]
  - LEUKOCYTOSIS [None]
  - PYREXIA [None]
  - TONSILLITIS [None]
